FAERS Safety Report 10245247 (Version 2)
Quarter: 2014Q3

REPORT INFORMATION
  Report Type: Spontaneous
  Country: CH (occurrence: CH)
  Receive Date: 20140618
  Receipt Date: 20140715
  Transmission Date: 20150326
  Serious: Yes (Other)
  Sender: FDA-Public Use
  Company Number: CH-PFIZER INC-2014160872

PATIENT
  Age: 66 Year
  Sex: Male

DRUGS (13)
  1. TRACRIUM [Suspect]
     Active Substance: ATRACURIUM BESYLATE
     Indication: TONGUE OPERATION
     Dosage: 35 MG, SINGLE
     Route: 042
     Dates: start: 20140528, end: 20140528
  2. DALACIN C PHOSPHAT [Suspect]
     Active Substance: CLINDAMYCIN PHOSPHATE
     Indication: TONGUE OPERATION
     Dosage: 600 MG, SINGLE
     Route: 041
     Dates: start: 20140528, end: 20140528
  3. DALACIN C [Suspect]
     Active Substance: CLINDAMYCIN PHOSPHATE
     Indication: TONGUE OPERATION
     Dosage: 300 MG, 2X/DAY
     Route: 048
     Dates: start: 20140528, end: 20140529
  4. ULTIVA [Suspect]
     Active Substance: REMIFENTANIL HYDROCHLORIDE
     Indication: TONGUE OPERATION
     Dosage: UNK
     Dates: start: 20140528, end: 20140528
  5. DISOPRIVAN ^ASTRA ZENECA^ [Suspect]
     Active Substance: PROPOFOL
     Indication: TONGUE OPERATION
     Dosage: 670 MG, SINGLE
     Route: 042
     Dates: start: 20140528, end: 20140528
  6. FENTANYL. [Suspect]
     Active Substance: FENTANYL
     Indication: TONGUE OPERATION
     Dosage: 300 MG, SINGLE
     Route: 042
     Dates: start: 20140528, end: 20140528
  7. EPHEDRIN [Concomitant]
     Active Substance: EPHEDRINE HYDROCHLORIDE
     Indication: TONGUE OPERATION
     Dosage: 35 MG, SINGLE
     Route: 042
     Dates: start: 20140528, end: 20140528
  8. PERFALGAN [Suspect]
     Active Substance: ACETAMINOPHEN
     Indication: TONGUE OPERATION
     Dosage: 1 G, PER 6 HOURS
     Route: 041
     Dates: start: 20140528, end: 20140528
  9. SIDROGA [Suspect]
     Active Substance: HERBALS
     Indication: TONGUE OPERATION
     Dosage: 1 DF, 2X/DAY
     Route: 002
     Dates: start: 20140528, end: 20140529
  10. MORPHINE HYDROCHLORIDE [Suspect]
     Active Substance: MORPHINE HYDROCHLORIDE
     Indication: TONGUE OPERATION
     Dosage: 5 MG, SINGLE
     Route: 042
     Dates: start: 20140528, end: 20140528
  11. TOPIRAMATE. [Concomitant]
     Active Substance: TOPIRAMATE
     Indication: EPILEPSY
     Dosage: 100 MG, 2X/DAY
     Route: 048
  12. FRAXIPARINE (NADROPARIN CALCIUM) [Suspect]
     Active Substance: NADROPARIN CALCIUM
     Indication: THROMBOSIS PROPHYLAXIS
     Dosage: 0.3 ML, SINGLE
     Route: 058
     Dates: start: 20140528
  13. DAFALGAN [Suspect]
     Active Substance: ACETAMINOPHEN
     Indication: TONGUE OPERATION
     Dosage: 1 G, 1 PER 6 HOURS
     Route: 048
     Dates: start: 20140529

REACTIONS (3)
  - Pruritus [Unknown]
  - Swelling face [Unknown]
  - Flushing [Unknown]

NARRATIVE: CASE EVENT DATE: 20140529
